FAERS Safety Report 6117808-7 (Version None)
Quarter: 2009Q1

REPORT INFORMATION
  Report Type: 
  Country: None (occurrence: None)
  Receive Date: 20090314
  Receipt Date: 20090129
  Transmission Date: 20090719
  Serious: No
  Sender: FDA-Public Use
  Company Number: US-ABBOTT-09P-163-0500860-00

PATIENT
  Sex: Female
  Weight: 65.83 kg

DRUGS (4)
  1. HUMIRA [Suspect]
     Indication: SAPHO SYNDROME
     Route: 058
     Dates: start: 20080401
  2. NAPROXEN [Concomitant]
     Indication: OSTEOARTHRITIS
  3. LEXAPRO [Concomitant]
     Indication: ANXIETY
  4. KLONOPIN [Concomitant]
     Indication: ANXIETY

REACTIONS (2)
  - INCORRECT DOSE ADMINISTERED [None]
  - SEASONAL ALLERGY [None]
